FAERS Safety Report 8431353-5 (Version None)
Quarter: 2012Q2

REPORT INFORMATION
  Report Type: 
  Country: None (occurrence: None)
  Receive Date: 20120613
  Receipt Date: 20120605
  Transmission Date: 20120825
  Serious: No
  Sender: FDA-Public Use
  Company Number: US-BIOGENIDEC-2012BI019935

PATIENT
  Sex: Female

DRUGS (2)
  1. AVONEX [Suspect]
     Indication: MULTIPLE SCLEROSIS
     Route: 030
     Dates: start: 19950201
  2. AVONEX [Suspect]
     Route: 030
     Dates: start: 20011217

REACTIONS (3)
  - HAEMATOMA [None]
  - FEELING ABNORMAL [None]
  - URINARY TRACT INFECTION [None]
